FAERS Safety Report 7664927-X (Version None)
Quarter: 2011Q3

REPORT INFORMATION
  Report Type: 
  Country: None (occurrence: None)
  Receive Date: 20110806
  Receipt Date: 20110204
  Transmission Date: 20111222
  Serious: No
  Sender: FDA-Public Use
  Company Number: US-ABBOTT-11P-163-0704067-00

PATIENT
  Weight: 58.112 kg

DRUGS (19)
  1. CRESTOR [Concomitant]
     Indication: BLOOD CHOLESTEROL INCREASED
  2. ADVAIR DISKUS 100/50 [Concomitant]
     Indication: ASTHMA
  3. ASCORBIC ACID [Concomitant]
     Indication: VITAMIN SUPPLEMENTATION
  4. NIASPAN [Suspect]
     Indication: LOW DENSITY LIPOPROTEIN INCREASED
  5. NIASPAN [Suspect]
     Indication: HIGH DENSITY LIPOPROTEIN DECREASED
     Dates: start: 20100224
  6. GLUCOSAMINE CHONDROITIN [Concomitant]
     Indication: PRODUCT USED FOR UNKNOWN INDICATION
  7. VENTOLIN HFA [Concomitant]
     Indication: ASTHMA
  8. ACTOS [Concomitant]
     Indication: DIABETES MELLITUS
  9. JENUVIA [Concomitant]
     Indication: DIABETES MELLITUS
  10. SYNTHROID [Concomitant]
     Indication: HYPOTHYROIDISM
  11. VITAMIN TAB [Concomitant]
     Indication: VITAMIN SUPPLEMENTATION
  12. METFORMIN HCL [Concomitant]
     Indication: DIABETES MELLITUS
  13. DITROPAN [Concomitant]
     Indication: URINARY TRACT DISORDER
  14. FISH OIL [Concomitant]
     Indication: MEDICAL DIET
  15. DIGOXIN [Concomitant]
     Indication: ATRIAL FIBRILLATION
  16. RESTASIS [Concomitant]
     Indication: DRY EYE
  17. VITAMIN B-12 [Concomitant]
     Indication: VITAMIN SUPPLEMENTATION
  18. CRANBERRY [Concomitant]
     Indication: MEDICAL DIET
  19. ESTER C [Concomitant]
     Indication: MINERAL SUPPLEMENTATION

REACTIONS (1)
  - FLUSHING [None]
